FAERS Safety Report 25960304 (Version 1)
Quarter: 2025Q4

REPORT INFORMATION
  Report Type: Report from Study
  Country: US (occurrence: US)
  Receive Date: 20251026
  Receipt Date: 20251026
  Transmission Date: 20260118
  Serious: Yes (Hospitalization, Other)
  Sender: ABBVIE
  Company Number: US-ABBVIE-6457026

PATIENT
  Age: 77 Year
  Sex: Female

DRUGS (2)
  1. RINVOQ [Suspect]
     Active Substance: UPADACITINIB
     Indication: Dermatitis atopic
     Dosage: FORM STRENGTH: 15 MILLIGRAM
     Route: 048
     Dates: start: 202509, end: 202509
  2. RINVOQ [Suspect]
     Active Substance: UPADACITINIB
     Indication: Dermatitis atopic
     Dosage: FORM STRENGTH: 15 MILLIGRAM
     Route: 048
     Dates: start: 20250218, end: 202509

REACTIONS (8)
  - Osteoarthritis [Not Recovered/Not Resolved]
  - Upper limb fracture [Recovered/Resolved]
  - Hepatic enzyme increased [Recovered/Resolved]
  - Osteoarthritis [Recovering/Resolving]
  - Intervertebral disc protrusion [Recovering/Resolving]
  - Enzyme level increased [Recovered/Resolved]
  - Fall [Recovered/Resolved]
  - Craniofacial fracture [Recovered/Resolved]

NARRATIVE: CASE EVENT DATE: 20250101
